FAERS Safety Report 10904513 (Version 1)
Quarter: 2015Q1

REPORT INFORMATION
  Report Type: Spontaneous
  Country: US (occurrence: None)
  Receive Date: 20150304
  Receipt Date: 20150304
  Transmission Date: 20150721
  Serious: Yes (Hospitalization)
  Sender: FDA-Public Use
  Company Number: None

PATIENT
  Age: 63 Year
  Sex: Male
  Weight: 65.6 kg

DRUGS (1)
  1. CASODEX [Suspect]
     Active Substance: BICALUTAMIDE

REACTIONS (5)
  - Chronic obstructive pulmonary disease [None]
  - Tachypnoea [None]
  - Dyspnoea exertional [None]
  - Influenza [None]
  - Hypoxia [None]

NARRATIVE: CASE EVENT DATE: 20150120
